FAERS Safety Report 4761223-5 (Version None)
Quarter: 2005Q3

REPORT INFORMATION
  Report Type: 
  Country: None (occurrence: None)
  Receive Date: 20050902
  Receipt Date: 20050902
  Transmission Date: 20060218
  Serious: No
  Sender: FDA-Public Use
  Company Number: None

PATIENT
  Sex: Female
  Weight: 49.8957 kg

DRUGS (3)
  1. ESTROSTEP [Suspect]
     Indication: CONTRACEPTION
     Dosage: 1 PILL PER DAY
     Dates: start: 20050201, end: 20050701
  2. WELLBUTRIN XL [Concomitant]
  3. CELEXA [Concomitant]

REACTIONS (1)
  - ALOPECIA [None]
